FAERS Safety Report 16797761 (Version 2)
Quarter: 2019Q3

REPORT INFORMATION
  Report Type: Spontaneous
  Country: JP (occurrence: JP)
  Receive Date: 20190912
  Receipt Date: 20190927
  Transmission Date: 20191005
  Serious: Yes (Disabling, Other)
  Sender: FDA-Public Use
  Company Number: JP-ABBVIE-19P-087-2921906-00

PATIENT
  Age: 42 Year
  Sex: Female
  Weight: 62 kg

DRUGS (1)
  1. LEUPLIN [Suspect]
     Active Substance: LEUPROLIDE ACETATE
     Indication: UTERINE LEIOMYOMA
     Route: 058
     Dates: start: 20190718, end: 20190718

REACTIONS (3)
  - Acute disseminated encephalomyelitis [Recovered/Resolved with Sequelae]
  - Multiple sclerosis [Unknown]
  - Blister [Unknown]

NARRATIVE: CASE EVENT DATE: 20190729
